FAERS Safety Report 6811761-6 (Version None)
Quarter: 2010Q3

REPORT INFORMATION
  Report Type: 
  Country: None (occurrence: None)
  Receive Date: 20100701
  Receipt Date: 20100621
  Transmission Date: 20110219
  Serious: Yes (Hospitalization)
  Sender: FDA-Public Use
  Company Number: 2008BI014337

PATIENT
  Age: 42 Year
  Sex: Female
  Weight: 80 kg

DRUGS (8)
  1. AVONEX [Suspect]
     Indication: MULTIPLE SCLEROSIS
     Route: 030
     Dates: start: 20000501, end: 20030101
  2. AVONEX [Suspect]
     Route: 030
     Dates: start: 20030101, end: 20060101
  3. AVONEX [Suspect]
     Route: 030
     Dates: start: 20060101
  4. AVONEX [Suspect]
     Route: 030
  5. ATENOLOL [Concomitant]
     Indication: HYPERTENSION
     Dates: start: 19940101
  6. DYAZIDE [Concomitant]
     Indication: HYPERTENSION
     Dates: start: 19940101
  7. NEURONTIN [Concomitant]
     Indication: PAIN
     Dates: start: 19990101
  8. MOTRIN [Concomitant]
     Indication: PAIN
     Dates: start: 19990101

REACTIONS (7)
  - ARTHROPATHY [None]
  - FALL [None]
  - MULTIPLE SCLEROSIS [None]
  - MULTIPLE SCLEROSIS RELAPSE [None]
  - OEDEMA PERIPHERAL [None]
  - SCOLIOSIS [None]
  - WEIGHT INCREASED [None]
